FAERS Safety Report 23396546 (Version 1)
Quarter: 2024Q1

REPORT INFORMATION
  Report Type: Spontaneous
  Country: US (occurrence: US)
  Receive Date: 20240112
  Receipt Date: 20240112
  Transmission Date: 20240409
  Serious: Yes (Other)
  Sender: FDA-Public Use
  Company Number: US-BAYER-2024A004392

PATIENT
  Age: 35 Year
  Sex: Female
  Weight: 77.098 kg

DRUGS (8)
  1. MIRENA [Suspect]
     Active Substance: LEVONORGESTREL
     Indication: Contraception
     Dosage: 20?G/DAY
     Route: 015
     Dates: start: 20230711
  2. SYNTHROID [Concomitant]
     Active Substance: LEVOTHYROXINE SODIUM
     Dosage: 125 ?G, QD
     Route: 048
  3. LIOTHYRONINE [Concomitant]
     Active Substance: LIOTHYRONINE
  4. FERRIC MALTOL [Concomitant]
     Active Substance: FERRIC MALTOL
     Dosage: 30 MG, BID
     Route: 048
  5. ZOLOFT [Concomitant]
     Active Substance: SERTRALINE HYDROCHLORIDE
     Dosage: 50 MG, QD
     Route: 048
  6. ULTRAM [Concomitant]
     Active Substance: TRAMADOL HYDROCHLORIDE
     Indication: Procedural pain
     Dosage: 50 MG, PRN
     Route: 048
     Dates: start: 20230711
  7. DI TE PER ANATOXAL [Concomitant]
     Active Substance: DIPHTHERIA AND TETANUS TOXOIDS AND PERTUSSIS VACCINE ADSORBED
     Dosage: 1 DF, ONCE
     Dates: start: 20230711, end: 20230711
  8. IBUPROFEN [Concomitant]
     Active Substance: IBUPROFEN
     Indication: Procedural pain
     Dosage: 800 MG, Q8HR
     Route: 048
     Dates: start: 20230711

REACTIONS (6)
  - Uterine perforation [Not Recovered/Not Resolved]
  - Haemorrhagic ovarian cyst [None]
  - Complication of device removal [None]
  - Menometrorrhagia [Not Recovered/Not Resolved]
  - Uterine leiomyoma [None]
  - Device use issue [None]

NARRATIVE: CASE EVENT DATE: 20230701
